FAERS Safety Report 24606934 (Version 1)
Quarter: 2024Q4

REPORT INFORMATION
  Report Type: Spontaneous
  Country: FR (occurrence: FR)
  Receive Date: 20241112
  Receipt Date: 20241112
  Transmission Date: 20250115
  Serious: Yes (Hospitalization)
  Sender: ROCHE
  Company Number: None

PATIENT
  Age: 43 Year
  Sex: Female
  Weight: 86 kg

DRUGS (16)
  1. OBINUTUZUMAB [Suspect]
     Active Substance: OBINUTUZUMAB
     Indication: Follicular lymphoma stage IV
     Dosage: J1/J8/J15
     Route: 042
     Dates: start: 20230807, end: 20240108
  2. METFORMIN [Concomitant]
     Active Substance: METFORMIN HYDROCHLORIDE
     Route: 048
  3. RISPERIDONE [Concomitant]
     Active Substance: RISPERIDONE
     Indication: Major depression
     Route: 048
  4. NAPROXEN [Concomitant]
     Active Substance: NAPROXEN
     Indication: Fibromyalgia
     Route: 048
  5. EUPANTOL [Concomitant]
     Active Substance: PANTOPRAZOLE SODIUM
     Route: 048
  6. VALACYCLOVIR HYDROCHLORIDE [Concomitant]
     Active Substance: VALACYCLOVIR HYDROCHLORIDE
     Indication: Opportunistic infection prophylaxis
     Route: 048
  7. VALIUM [Concomitant]
     Active Substance: DIAZEPAM
     Indication: Major depression
     Route: 048
  8. ATOVAQUONE [Concomitant]
     Active Substance: ATOVAQUONE
     Route: 048
  9. CYCLOPHOSPHAMIDE [Concomitant]
     Active Substance: CYCLOPHOSPHAMIDE
     Indication: Follicular lymphoma stage IV
     Dosage: J1
     Route: 042
     Dates: start: 20230807, end: 20231201
  10. VINCRISTINE [Concomitant]
     Active Substance: VINCRISTINE
     Dosage: J1
     Route: 042
     Dates: start: 20230807, end: 20231201
  11. DOXORUBICIN [Concomitant]
     Active Substance: DOXORUBICIN
     Dosage: J1
     Route: 042
     Dates: start: 20230807, end: 20231201
  12. PREDNISONE [Concomitant]
     Active Substance: PREDNISONE
     Indication: Follicular lymphoma stage IV
     Dosage: J2-5
     Route: 048
     Dates: start: 20230807, end: 20231201
  13. ONDANSETRON [Concomitant]
     Active Substance: ONDANSETRON
     Dosage: J1
     Route: 048
     Dates: start: 20230807, end: 20231201
  14. SOLU-MEDROL [Concomitant]
     Active Substance: METHYLPREDNISOLONE SODIUM SUCCINATE
     Dosage: J1-J8-15
     Route: 042
     Dates: start: 20230807, end: 20240108
  15. ACETAMINOPHEN [Concomitant]
     Active Substance: ACETAMINOPHEN
     Dosage: J1-J8-15
     Route: 042
     Dates: start: 20230807, end: 20240108
  16. CETIRIZINE [Concomitant]
     Active Substance: CETIRIZINE HYDROCHLORIDE
     Dosage: J1-J8-15
     Route: 048
     Dates: start: 20230807, end: 20240108

REACTIONS (1)
  - Interstitial lung disease [Recovering/Resolving]

NARRATIVE: CASE EVENT DATE: 20231209
